FAERS Safety Report 5635712-5 (Version None)
Quarter: 2008Q1

REPORT INFORMATION
  Report Type: 
  Country: None (occurrence: None)
  Receive Date: 20080220
  Receipt Date: 20080206
  Transmission Date: 20080703
  Serious: Yes (Other)
  Sender: FDA-Public Use
  Company Number: 2008-00446

PATIENT

DRUGS (1)
  1. VELCADE [Suspect]
     Indication: MULTIPLE MYELOMA

REACTIONS (4)
  - AUTONOMIC NEUROPATHY [None]
  - DRUG TOXICITY [None]
  - INAPPROPRIATE ANTIDIURETIC HORMONE SECRETION [None]
  - ORTHOSTATIC HYPOTENSION [None]
